FAERS Safety Report 6423004-6 (Version None)
Quarter: 2009Q4

REPORT INFORMATION
  Report Type: 
  Country: None (occurrence: None)
  Receive Date: 20091028
  Receipt Date: 20091013
  Transmission Date: 20100525
  Serious: Yes (Other)
  Sender: FDA-Public Use
  Company Number: US-1171251

PATIENT
  Sex: Male
  Weight: 77.1115 kg

DRUGS (1)
  1. PREDNISOLONE ACETATE [Suspect]
     Indication: EYE INFLAMMATION
     Dosage: (TWO GTT FOUR TIMES QD OPHTHALMIC)
     Route: 047
     Dates: start: 20070101

REACTIONS (5)
  - CORNEAL DISORDER [None]
  - GLAUCOMA [None]
  - INTRAOCULAR PRESSURE DECREASED [None]
  - OROPHARYNGEAL PAIN [None]
  - VISUAL IMPAIRMENT [None]
